FAERS Safety Report 18970609 (Version 1)
Quarter: 2021Q1

REPORT INFORMATION
  Report Type: Spontaneous
  Country: US (occurrence: US)
  Receive Date: 20210305
  Receipt Date: 20210305
  Transmission Date: 20210420
  Serious: Yes (Other)
  Sender: FDA-Public Use
  Company Number: US-TEVA-2021-US-1885346

PATIENT
  Age: 46 Year
  Sex: Male

DRUGS (1)
  1. BACLOFEN. [Suspect]
     Active Substance: BACLOFEN
     Indication: MUSCLE SPASMS
     Dosage: 15 MILLIGRAM DAILY;
     Route: 065

REACTIONS (2)
  - Toxic encephalopathy [Recovering/Resolving]
  - Toxicity to various agents [Recovering/Resolving]
